FAERS Safety Report 4475741-0 (Version None)
Quarter: 2004Q3

REPORT INFORMATION
  Report Type: 
  Country: None (occurrence: None)
  Receive Date: 20040923
  Receipt Date: 20040707
  Transmission Date: 20050211
  Serious: No
  Sender: FDA-Public Use
  Company Number: USA040772021

PATIENT
  Age: 54 Year
  Sex: Female

DRUGS (6)
  1. FORTEO [Suspect]
     Indication: OSTEOPOROSIS
     Dates: start: 20040501
  2. CLIMARA [Concomitant]
  3. PULMICORT [Concomitant]
  4. VITAMINS NOS [Concomitant]
  5. VITAMIN E [Concomitant]
  6. VITAMIN C [Concomitant]

REACTIONS (3)
  - HYPOAESTHESIA [None]
  - PAIN IN EXTREMITY [None]
  - SENSORY DISTURBANCE [None]
